FAERS Safety Report 4637953-2 (Version None)
Quarter: 2005Q2

REPORT INFORMATION
  Report Type: 
  Country: None (occurrence: None)
  Receive Date: 20050328
  Receipt Date: 20050119
  Transmission Date: 20051028
  Serious: No
  Sender: FDA-Public Use
  Company Number: USA050188776

PATIENT
  Age: 36 Year
  Sex: Male

DRUGS (1)
  1. STRATTERA [Suspect]
     Indication: DISTURBANCE IN ATTENTION
     Dosage: 25 MG DAY
     Dates: start: 20050117

REACTIONS (3)
  - CHILLS [None]
  - DYSURIA [None]
  - ERECTILE DYSFUNCTION [None]
